APPROVED DRUG PRODUCT: CLEOCIN
Active Ingredient: CLINDAMYCIN PALMITATE HYDROCHLORIDE
Strength: EQ 75MG BASE/5ML **Federal Register determination that product was not discontinued or withdrawn for safety or effectiveness reasons**
Dosage Form/Route: FOR SOLUTION;ORAL
Application: A061827 | Product #001
Applicant: PHARMACIA AND UPJOHN CO
Approved: Approved Prior to Jan 1, 1982 | RLD: No | RS: No | Type: DISCN